FAERS Safety Report 21685530 (Version 1)
Quarter: 2022Q4

REPORT INFORMATION
  Report Type: Spontaneous
  Country: CA (occurrence: CA)
  Receive Date: 20221206
  Receipt Date: 20221206
  Transmission Date: 20230113
  Serious: Yes (Other)
  Sender: FDA-Public Use
  Company Number: CA-JNJFOC-20221205358

PATIENT
  Age: 53 Year
  Sex: Female
  Weight: 92 kg

DRUGS (1)
  1. REMICADE [Suspect]
     Active Substance: INFLIXIMAB
     Indication: Crohn^s disease
     Route: 041

REACTIONS (7)
  - Blepharitis [Unknown]
  - Acne [Unknown]
  - Bronchitis bacterial [Unknown]
  - Sinusitis bacterial [Unknown]
  - Rash macular [Unknown]
  - Off label use [Unknown]
  - Intentional product use issue [Unknown]
